FAERS Safety Report 17006587 (Version 2)
Quarter: 2020Q2

REPORT INFORMATION
  Report Type: Spontaneous
  Country: US (occurrence: US)
  Receive Date: 20191107
  Receipt Date: 20200414
  Transmission Date: 20200713
  Serious: Yes (Hospitalization, Disabling, Other)
  Sender: FDA-Public Use
  Company Number: US-JNJFOC-20191104219

PATIENT
  Age: 63 Year
  Sex: Male

DRUGS (2)
  1. INVOKANA [Suspect]
     Active Substance: CANAGLIFLOZIN
     Indication: DIABETES MELLITUS
     Route: 048
     Dates: start: 2014, end: 201610
  2. INVOKANA [Suspect]
     Active Substance: CANAGLIFLOZIN
     Route: 048
     Dates: end: 201710

REACTIONS (9)
  - Osteomyelitis acute [Unknown]
  - Hand amputation [Unknown]
  - Gangrene [Unknown]
  - Necrosis [Unknown]
  - Diabetic foot infection [Unknown]
  - Chronic kidney disease [Unknown]
  - Staphylococcal infection [Unknown]
  - Foot amputation [Unknown]
  - Diabetic ketoacidosis [Unknown]

NARRATIVE: CASE EVENT DATE: 201610
